FAERS Safety Report 7491498-3 (Version None)
Quarter: 2011Q2

REPORT INFORMATION
  Report Type: 
  Country: None (occurrence: None)
  Receive Date: 20110519
  Receipt Date: 20110516
  Transmission Date: 20111010
  Serious: Yes (Death)
  Sender: FDA-Public Use
  Company Number: PHFR2011GB03059

PATIENT
  Sex: Male

DRUGS (2)
  1. CLOZARIL [Suspect]
     Indication: SCHIZOPHRENIA
     Dosage: UNK DF,
     Route: 048
     Dates: start: 19950101, end: 20050101
  2. CLOZARIL [Suspect]
     Dosage: UNK DF, UNK
     Route: 048
     Dates: start: 20070929

REACTIONS (1)
  - DEATH [None]
